FAERS Safety Report 7610028-6 (Version None)
Quarter: 2011Q3

REPORT INFORMATION
  Report Type: 
  Country: None (occurrence: None)
  Receive Date: 20110714
  Receipt Date: 20110613
  Transmission Date: 20111222
  Serious: No
  Sender: FDA-Public Use
  Company Number: US-BAYER-2011-051414

PATIENT
  Age: 25 Year
  Sex: Female
  Weight: 95 kg

DRUGS (2)
  1. ALEVE (CAPLET) [Suspect]
     Indication: MIGRAINE
     Dosage: 220 MG, UNK
     Route: 048
  2. ALEVE (CAPLET) [Suspect]
     Indication: OSTEOARTHRITIS

REACTIONS (2)
  - OSTEOARTHRITIS [None]
  - MIGRAINE [None]
